FAERS Safety Report 4471672-0 (Version None)
Quarter: 2004Q4

REPORT INFORMATION
  Report Type: 
  Country: None (occurrence: None)
  Receive Date: 20041012
  Receipt Date: 20041006
  Transmission Date: 20050328
  Serious: Yes (Other)
  Sender: FDA-Public Use
  Company Number: CA-MERCK-0410CAN00178

PATIENT
  Sex: Female

DRUGS (2)
  1. ASPIRIN [Concomitant]
     Route: 065
  2. VIOXX [Suspect]
     Route: 048
     Dates: start: 20010101

REACTIONS (6)
  - ASTHENIA [None]
  - DEPRESSED MOOD [None]
  - DIARRHOEA [None]
  - MALAISE [None]
  - MYOCARDIAL INFARCTION [None]
  - TREMOR [None]
